FAERS Safety Report 9261313 (Version 2)
Quarter: 2013Q3

REPORT INFORMATION
  Report Type: Spontaneous
  Country: FR (occurrence: FR)
  Receive Date: 20130429
  Receipt Date: 20130814
  Transmission Date: 20140515
  Serious: Yes (Other)
  Sender: FDA-Public Use
  Company Number: FR-PFIZER INC-2013130624

PATIENT
  Sex: Female

DRUGS (2)
  1. RELPAX [Suspect]
     Dosage: 3 DF, MONTHLY
  2. TAHOR [Concomitant]
     Dosage: UNK

REACTIONS (1)
  - Endometriosis [Unknown]
